FAERS Safety Report 24169670 (Version 2)
Quarter: 2024Q3

REPORT INFORMATION
  Report Type: Spontaneous
  Country: JP (occurrence: JP)
  Receive Date: 20240802
  Receipt Date: 20240814
  Transmission Date: 20241016
  Serious: No
  Sender: AMGEN
  Company Number: JP-KYOWAKIRIN-2024KK017948

PATIENT

DRUGS (1)
  1. DARBEPOETIN ALFA [Suspect]
     Active Substance: DARBEPOETIN ALFA
     Indication: Myelodysplastic syndrome
     Dosage: 240 MICROGRAM, (120 MICROGRAM X 2, TWICE A MONTH)
     Route: 065

REACTIONS (2)
  - Condition aggravated [Unknown]
  - Inappropriate schedule of product administration [Unknown]
